FAERS Safety Report 8926276 (Version 1)
Quarter: 2012Q4

REPORT INFORMATION
  Report Type: 
  Country: AU (occurrence: AU)
  Receive Date: 20121126
  Receipt Date: 20121126
  Transmission Date: 20130627
  Serious: Yes (Death)
  Sender: FDA-Public Use
  Company Number: AU-ROXANE LABORATORIES, INC.-2012-BI-01034GD

PATIENT
  Age: 37 Year
  Sex: Male

DRUGS (4)
  1. CODEINE [Suspect]
  2. PARACETAMOL [Suspect]
  3. MIRTAZAPINE [Suspect]
  4. TRAMADOL [Suspect]

REACTIONS (3)
  - Multi-organ failure [Fatal]
  - Hypoxia [Fatal]
  - Pneumonia pneumococcal [Fatal]
